FAERS Safety Report 9283036 (Version 1)
Quarter: 2013Q2

REPORT INFORMATION
  Report Type: Spontaneous
  Country: US (occurrence: US)
  Receive Date: 20130510
  Receipt Date: 20130510
  Transmission Date: 20140414
  Serious: No
  Sender: FDA-Public Use
  Company Number: US-GLAXOSMITHKLINE-A0974614A

PATIENT
  Age: 53 Year
  Sex: Female

DRUGS (3)
  1. TYKERB [Suspect]
     Indication: BREAST CANCER
     Dosage: 3TAB PER DAY
     Route: 048
     Dates: start: 20120322, end: 20120419
  2. TRAMADOL [Concomitant]
  3. IBUPROFEN [Concomitant]

REACTIONS (5)
  - Fatigue [Recovering/Resolving]
  - Decreased appetite [Unknown]
  - Pruritus [Unknown]
  - Poor quality sleep [Unknown]
  - Fatigue [Unknown]
